FAERS Safety Report 20232589 (Version 1)
Quarter: 2021Q4

REPORT INFORMATION
  Report Type: Spontaneous
  Country: US (occurrence: US)
  Receive Date: 20211227
  Receipt Date: 20211227
  Transmission Date: 20220303
  Serious: Yes (Other)
  Sender: FDA-Public Use
  Company Number: US-PFIZER INC-202101797445

PATIENT
  Age: 89 Year
  Sex: Female

DRUGS (1)
  1. VYNDAMAX [Suspect]
     Active Substance: TAFAMIDIS
     Dosage: 61 MG

REACTIONS (18)
  - Aortic stenosis [Unknown]
  - Chronic kidney disease [Unknown]
  - Atrial fibrillation [Unknown]
  - Cataract nuclear [Unknown]
  - Amyloidosis [Unknown]
  - Hypothyroidism [Unknown]
  - Aortic valve replacement [Unknown]
  - Hypertension [Unknown]
  - Hyperlipidaemia [Unknown]
  - Atelectasis [Unknown]
  - Essential hypertension [Unknown]
  - Anaemia [Unknown]
  - Hypervolaemia [Unknown]
  - Joint stiffness [Unknown]
  - Hypercalcaemia [Unknown]
  - Weight increased [Unknown]
  - Joint injury [Unknown]
  - Cardiovascular disorder [Unknown]
